FAERS Safety Report 24674133 (Version 1)
Quarter: 2024Q4

REPORT INFORMATION
  Report Type: Spontaneous
  Country: ES (occurrence: ES)
  Receive Date: 20241128
  Receipt Date: 20241128
  Transmission Date: 20250114
  Serious: Yes (Death, Other)
  Sender: INCYTE
  Company Number: ES-EVENT-000673

PATIENT

DRUGS (1)
  1. PEMAZYRE [Suspect]
     Active Substance: PEMIGATINIB
     Indication: Brain neoplasm
     Dosage: UNK
     Route: 065

REACTIONS (3)
  - Brain neoplasm [Fatal]
  - Disease progression [Fatal]
  - Off label use [Unknown]
